FAERS Safety Report 14555531 (Version 3)
Quarter: 2018Q1

REPORT INFORMATION
  Report Type: Report from Study
  Country: None (occurrence: NL)
  Receive Date: 20180220
  Receipt Date: 20180327
  Transmission Date: 20180509
  Serious: Yes (Hospitalization)
  Sender: FDA-Public Use
  Company Number: NL-ABBVIE-18K-114-2263247-00

PATIENT
  Sex: Female
  Weight: 73 kg

DRUGS (2)
  1. DUODOPA [Suspect]
     Active Substance: CARBIDOPA\LEVODOPA
     Dosage: MORNING DOSE: 4.5 CONTINUOUS DOSE: 2.5 EXTRA DOSE: 3.5 NIGHT DOSE: 2.4 EXTRA DOSE NIGHT: 1
     Route: 050
  2. DUODOPA [Suspect]
     Active Substance: CARBIDOPA\LEVODOPA
     Indication: PARKINSON^S DISEASE
     Dosage: MD: 4.5, CD: 2.7, ED: 3.5, CND: 2.4, END: 1
     Route: 050
     Dates: start: 20140624

REACTIONS (7)
  - Tremor [Unknown]
  - Post procedural complication [Unknown]
  - Fall [Unknown]
  - Gait disturbance [Not Recovered/Not Resolved]
  - Joint dislocation [Recovered/Resolved]
  - Mobility decreased [Not Recovered/Not Resolved]
  - Hip fracture [Not Recovered/Not Resolved]

NARRATIVE: CASE EVENT DATE: 2018
